FAERS Safety Report 5517849-4 (Version None)
Quarter: 2007Q4

REPORT INFORMATION
  Report Type: 
  Country: None (occurrence: None)
  Receive Date: 20071113
  Receipt Date: 20071029
  Transmission Date: 20080405
  Serious: Yes (Congenital Anomaly)
  Sender: FDA-Public Use
  Company Number: S07-USA-05717-02

PATIENT
  Sex: Female
  Weight: 3.2 kg

DRUGS (1)
  1. LEXAPRO [Suspect]
     Dates: start: 20060608, end: 20060621

REACTIONS (5)
  - CAESAREAN SECTION [None]
  - CONVULSION [None]
  - CRANIOSYNOSTOSIS [None]
  - DRUG EXPOSURE DURING PREGNANCY [None]
  - POST PROCEDURAL COMPLICATION [None]
